FAERS Safety Report 8490634-X (Version None)
Quarter: 2012Q3

REPORT INFORMATION
  Report Type: 
  Country: None (occurrence: None)
  Receive Date: 20120705
  Receipt Date: 20120626
  Transmission Date: 20120928
  Serious: Yes (Hospitalization)
  Sender: FDA-Public Use
  Company Number: US-ABBOTT-12P-163-0949952-00

PATIENT
  Sex: Female
  Weight: 41.768 kg

DRUGS (3)
  1. CREON [Suspect]
     Indication: PANCREATITIS
     Dates: start: 20110701
  2. UNKNOWN HIGH BLOOD PRESSURE MEDICATIONS [Concomitant]
     Indication: PRODUCT USED FOR UNKNOWN INDICATION
  3. OMEPRAZOLE [Concomitant]
     Indication: PRODUCT USED FOR UNKNOWN INDICATION

REACTIONS (3)
  - PNEUMONIA [None]
  - ABDOMINAL PAIN UPPER [None]
  - ABDOMINAL PAIN [None]
